FAERS Safety Report 9146053 (Version 1)
Quarter: 2013Q1

REPORT INFORMATION
  Report Type: Report from Study
  Country: US (occurrence: US)
  Receive Date: 20130307
  Receipt Date: 20130307
  Transmission Date: 20140127
  Serious: Yes (Hospitalization)
  Sender: FDA-Public Use
  Company Number: US-BAYER-2013-028896

PATIENT
  Age: 29 Year
  Sex: Male

DRUGS (5)
  1. BETASERON [Suspect]
     Indication: MULTIPLE SCLEROSIS
     Dosage: 8 MIU, QOD
     Route: 058
     Dates: start: 20121129
  2. NAPROXEN [Concomitant]
  3. TRAMADOL [Concomitant]
  4. NORCO [Concomitant]
  5. ALEVE GELCAP [Concomitant]
     Indication: PREMEDICATION

REACTIONS (3)
  - Sjogren^s syndrome [None]
  - Migraine [None]
  - Eye inflammation [None]
